FAERS Safety Report 7419802-2 (Version None)
Quarter: 2011Q2

REPORT INFORMATION
  Report Type: 
  Country: None (occurrence: None)
  Receive Date: 20110413
  Receipt Date: 20110413
  Transmission Date: 20111010
  Serious: Yes (Other)
  Sender: FDA-Public Use
  Company Number: None

PATIENT
  Sex: Female
  Weight: 58.9676 kg

DRUGS (1)
  1. FEMARA [Suspect]
     Indication: MALIGNANT BREAST LUMP REMOVAL
     Dosage: 1 PER DAY
     Dates: start: 20070101

REACTIONS (18)
  - HOT FLUSH [None]
  - INSOMNIA [None]
  - OEDEMA PERIPHERAL [None]
  - BONE LOSS [None]
  - DIZZINESS [None]
  - VULVOVAGINAL DRYNESS [None]
  - ARTHRALGIA [None]
  - WEIGHT INCREASED [None]
  - MYALGIA [None]
  - MEMORY IMPAIRMENT [None]
  - NIGHT SWEATS [None]
  - FATIGUE [None]
  - CONSTIPATION [None]
  - ABDOMINAL PAIN [None]
  - DYSPNOEA [None]
  - SPINAL FRACTURE [None]
  - CONFUSIONAL STATE [None]
  - PRURITUS [None]
